FAERS Safety Report 20439091 (Version 1)
Quarter: 2022Q1

REPORT INFORMATION
  Report Type: Spontaneous
  Country: US (occurrence: None)
  Receive Date: 20220204
  Receipt Date: 20220204
  Transmission Date: 20220424
  Serious: Yes (Life-Threatening, Hospitalization)
  Sender: FDA-Public Use
  Company Number: None

PATIENT
  Age: 65 Year
  Sex: Male

DRUGS (1)
  1. LENVATINIB [Suspect]
     Active Substance: LENVATINIB
     Dosage: FREQUENCY : DAILY;?
     Route: 048

REACTIONS (4)
  - Confusional state [None]
  - Disorientation [None]
  - Pain [None]
  - Embolic stroke [None]

NARRATIVE: CASE EVENT DATE: 20210514
